FAERS Safety Report 19686091 (Version 1)
Quarter: 2021Q3

REPORT INFORMATION
  Report Type: Spontaneous
  Country: US (occurrence: US)
  Receive Date: 20210811
  Receipt Date: 20210811
  Transmission Date: 20211014
  Serious: No
  Sender: FDA-Public Use
  Company Number: US-PERRIGO-20US018459

PATIENT
  Age: 26 Year
  Sex: Female
  Weight: 61.22 kg

DRUGS (6)
  1. VENTOLIN [Concomitant]
     Active Substance: ALBUTEROL SULFATE
     Indication: ASTHMA
     Dosage: UNK, PRN
     Route: 055
     Dates: start: 2017
  2. LORATADINE. [Suspect]
     Active Substance: LORATADINE
     Indication: THROAT IRRITATION
     Dosage: 10 MG QD, AND 1/2 TABLET TO 10 MG PRN
     Route: 048
     Dates: start: 202009, end: 20201209
  3. LORATADINE. [Suspect]
     Active Substance: LORATADINE
     Indication: HYPERSENSITIVITY
     Dosage: 10 MG, QD
     Route: 048
     Dates: start: 20201210, end: 20201219
  4. DOXYCYCLINE. [Concomitant]
     Active Substance: DOXYCYCLINE
     Indication: ORAL INFECTION
     Dosage: UNKNOWN, UNKNOWN
     Route: 065
     Dates: start: 20201209, end: 20201211
  5. IPRATROPIUM BROMIDE. [Concomitant]
     Active Substance: IPRATROPIUM BROMIDE
     Indication: ASTHMA
     Dosage: VIA NEBULIZER, QD
     Route: 055
     Dates: start: 2018
  6. LORATADINE. [Suspect]
     Active Substance: LORATADINE
     Indication: URTICARIA
     Dosage: 10 MG QD, AND 1/2 TABLET TO 10 MG PRN
     Route: 048
     Dates: start: 202006, end: 202009

REACTIONS (4)
  - Throat tightness [Recovered/Resolved]
  - Wrong technique in product usage process [Recovered/Resolved]
  - Off label use [Recovered/Resolved]
  - Overdose [Recovered/Resolved]

NARRATIVE: CASE EVENT DATE: 202006
